FAERS Safety Report 6265917-4 (Version None)
Quarter: 2009Q3

REPORT INFORMATION
  Report Type: 
  Country: None (occurrence: None)
  Receive Date: 20090709
  Receipt Date: 20090709
  Transmission Date: 20100115
  Serious: Yes (Other)
  Sender: FDA-Public Use
  Company Number: None

PATIENT
  Age: 27 Year
  Sex: Female
  Weight: 97.5234 kg

DRUGS (2)
  1. AVELOX [Suspect]
     Indication: CHEST DISCOMFORT
     Dosage: 1 TABLET DAILY PO
     Route: 048
     Dates: start: 20090630, end: 20090708
  2. AVELOX [Suspect]
     Indication: PYREXIA
     Dosage: 1 TABLET DAILY PO
     Route: 048
     Dates: start: 20090630, end: 20090708

REACTIONS (8)
  - ABNORMAL DREAMS [None]
  - ANXIETY [None]
  - DEPRESSION [None]
  - MENTAL DISORDER [None]
  - NAUSEA [None]
  - NERVOUSNESS [None]
  - TREMOR [None]
  - VISUAL IMPAIRMENT [None]
